FAERS Safety Report 19088915 (Version 1)
Quarter: 2021Q2

REPORT INFORMATION
  Report Type: Report from Study
  Country: None (occurrence: US)
  Receive Date: 20210403
  Receipt Date: 20210403
  Transmission Date: 20210717
  Serious: Yes (Hospitalization, Other)
  Sender: FDA-Public Use
  Company Number: US-ABBVIE-21K-163-3838823-00

PATIENT
  Age: 67 Year
  Sex: Female

DRUGS (1)
  1. RINVOQ [Suspect]
     Active Substance: UPADACITINIB
     Indication: RHEUMATOID ARTHRITIS
     Route: 048

REACTIONS (6)
  - Weight increased [Unknown]
  - Cerebrovascular accident [Unknown]
  - Hospitalisation [Unknown]
  - Dysphagia [Unknown]
  - Pneumonia [Unknown]
  - Neuralgia [Unknown]

NARRATIVE: CASE EVENT DATE: 2020
